FAERS Safety Report 7006477-X (Version None)
Quarter: 2010Q3

REPORT INFORMATION
  Report Type: 
  Country: None (occurrence: None)
  Receive Date: 20100910
  Receipt Date: 20100907
  Transmission Date: 20110219
  Serious: Yes (Death)
  Sender: FDA-Public Use
  Company Number: 2010SP047803

PATIENT
  Age: 64 Year
  Sex: Female
  Weight: 75 kg

DRUGS (1)
  1. NOXAFIL [Suspect]
     Indication: PROPHYLAXIS
     Dosage: 200 MG;TID
     Dates: start: 20090616, end: 20090720

REACTIONS (3)
  - FUNGAL INFECTION [None]
  - RESPIRATORY FAILURE [None]
  - SEPSIS [None]
